FAERS Safety Report 6874992-5 (Version None)
Quarter: 2010Q2

REPORT INFORMATION
  Report Type: 
  Country: None (occurrence: None)
  Receive Date: 20100616
  Receipt Date: 20090515
  Transmission Date: 20101027
  Serious: Yes (Hospitalization)
  Sender: FDA-Public Use
  Company Number: 1000006281

PATIENT
  Age: 92 Year
  Sex: Female

DRUGS (9)
  1. NAMENDA [Suspect]
     Indication: DEMENTIA ALZHEIMER'S TYPE
     Dosage: 5 MG (5 MG,1 IN 1 D),ORAL
     Route: 048
     Dates: start: 20050101, end: 20060101
  2. NAMENDA [Suspect]
     Indication: DEMENTIA ALZHEIMER'S TYPE
     Dosage: 10 MG,ORAL ; 5 MG (5 MG,1 IN 1 D),ORAL
     Route: 048
     Dates: start: 20060101, end: 20060101
  3. NAMENDA [Suspect]
     Indication: DEMENTIA ALZHEIMER'S TYPE
     Dosage: 10 MG,ORAL ; 5 MG (5 MG,1 IN 1 D),ORAL
     Route: 048
     Dates: start: 20060101, end: 20090327
  4. NAMENDA [Suspect]
     Indication: DEMENTIA ALZHEIMER'S TYPE
     Dosage: 5 MG (5 MG,1 IN 1 D),ORAL
     Route: 048
     Dates: start: 20090424
  5. ASPIRIN [Concomitant]
  6. LISINOPRIL [Concomitant]
  7. CALTRATE [Concomitant]
  8. LOVASTATIN [Concomitant]
  9. ARICEPT [Concomitant]

REACTIONS (7)
  - APHASIA [None]
  - EMOTIONAL DISTRESS [None]
  - FALL [None]
  - GASTROINTESTINAL DISORDER [None]
  - HIP FRACTURE [None]
  - LETHARGY [None]
  - MEDICATION ERROR [None]
